FAERS Safety Report 24561528 (Version 1)
Quarter: 2024Q4

REPORT INFORMATION
  Report Type: Spontaneous
  Country: US (occurrence: None)
  Receive Date: 20241029
  Receipt Date: 20241029
  Transmission Date: 20250114
  Serious: No
  Sender: Public
  Company Number: None

PATIENT
  Age: 60 Year
  Sex: Female

DRUGS (2)
  1. TAVNEOS [Suspect]
     Active Substance: AVACOPAN
  2. REXULTI [Suspect]
     Active Substance: BREXPIPRAZOLE

REACTIONS (3)
  - Gastrointestinal disorder [None]
  - Therapy interrupted [None]
  - Therapy change [None]
